FAERS Safety Report 12840199 (Version 1)
Quarter: 2016Q4

REPORT INFORMATION
  Report Type: Spontaneous
  Country: US (occurrence: US)
  Receive Date: 20161012
  Receipt Date: 20161012
  Transmission Date: 20170207
  Serious: Yes (Hospitalization)
  Sender: FDA-Public Use
  Company Number: US-BELCHER PHARMACEUTICALS, LLC-2016VTS00156

PATIENT
  Age: 74 Year
  Sex: Female
  Weight: 79.37 kg

DRUGS (4)
  1. UNSPECIFIED IMMUNOGLOBULINS [Concomitant]
     Dosage: UNK UNK, 2X/MONTH
  2. SPINAL STIMULATOR (UNSPECIFIED) [Concomitant]
  3. MORPHINE PUMP [Concomitant]
     Active Substance: MORPHINE
  4. HYOSCYAMINE SULFATE SL [Suspect]
     Active Substance: HYOSCYAMINE SULFATE
     Indication: GASTROOESOPHAGEAL REFLUX DISEASE
     Dosage: 0.125 MG, 3X/DAY
     Route: 060
     Dates: end: 201609

REACTIONS (8)
  - Visual impairment [Recovering/Resolving]
  - Hot flush [Recovering/Resolving]
  - Embolism [Recovered/Resolved]
  - Disorientation [Recovering/Resolving]
  - Abnormal behaviour [Recovered/Resolved]
  - Pain in extremity [Recovered/Resolved]
  - Gastrooesophageal reflux disease [Recovered/Resolved]
  - Non-cardiac chest pain [Recovered/Resolved]

NARRATIVE: CASE EVENT DATE: 2015
